FAERS Safety Report 17220304 (Version 1)
Quarter: 2019Q4

REPORT INFORMATION
  Report Type: Spontaneous
  Country: RO (occurrence: RO)
  Receive Date: 20191231
  Receipt Date: 20191231
  Transmission Date: 20200122
  Serious: Yes (Death)
  Sender: FDA-Public Use
  Company Number: RO-MYLANLABS-2019M1132259

PATIENT
  Age: 41 Year
  Sex: Female

DRUGS (6)
  1. LAPATINIB [Suspect]
     Active Substance: LAPATINIB
     Indication: CHEMOTHERAPY
     Dosage: 1250 MG, 1X PER DAY
     Dates: start: 201602
  2. TRASTUZUMAB. [Suspect]
     Active Substance: TRASTUZUMAB
     Indication: PRODUCT USED FOR UNKNOWN INDICATION
     Dosage: 6 MILLIGRAM/KILOGRAM, 3XW
     Dates: start: 201501, end: 201706
  3. TRASTUZUMAB. [Suspect]
     Active Substance: TRASTUZUMAB
     Dosage: 3.6 MG/KG, 3X PER DAY
     Dates: start: 201802
  4. ZOLEDRONIC ACID [Suspect]
     Active Substance: ZOLEDRONIC ACID
     Indication: RADIOTHERAPY
     Dosage: 4 MG; EVERY 3 WEEKS
  5. CAPECITABINE. [Suspect]
     Active Substance: CAPECITABINE
     Indication: CHEMOTHERAPY
     Dosage: 2000 MG/M2, 1X PER DAY, DAYS 1-14
     Dates: start: 201602
  6. TRASTUZUMAB. [Suspect]
     Active Substance: TRASTUZUMAB
     Indication: CHEMOTHERAPY
     Dosage: 8 MG/KG; LOADING DOSE
     Route: 042
     Dates: start: 201501, end: 201706

REACTIONS (3)
  - Disease progression [Fatal]
  - Vomiting [Fatal]
  - Headache [Fatal]
